FAERS Safety Report 8122706-3 (Version None)
Quarter: 2012Q1

REPORT INFORMATION
  Report Type: 
  Country: None (occurrence: None)
  Receive Date: 20120208
  Receipt Date: 20120130
  Transmission Date: 20120608
  Serious: No
  Sender: FDA-Public Use
  Company Number: US-BIOGENIDEC-2011BI045627

PATIENT
  Sex: Female

DRUGS (2)
  1. ADVAIR DISKUS 100/50 [Concomitant]
     Indication: CHRONIC OBSTRUCTIVE PULMONARY DISEASE
  2. TYSABRI [Suspect]
     Indication: MULTIPLE SCLEROSIS
     Route: 042
     Dates: start: 20070419

REACTIONS (12)
  - HEMIPARESIS [None]
  - DISTURBANCE IN ATTENTION [None]
  - LOWER EXTREMITY MASS [None]
  - EMOTIONAL DISTRESS [None]
  - DYSARTHRIA [None]
  - FEELING ABNORMAL [None]
  - BREAST MASS [None]
  - LIGAMENT SPRAIN [None]
  - MOBILITY DECREASED [None]
  - DYSPNOEA [None]
  - IMPATIENCE [None]
  - GAIT DISTURBANCE [None]
